FAERS Safety Report 9656567 (Version 3)
Quarter: 2014Q3

REPORT INFORMATION
  Report Type: Spontaneous
  Country: US (occurrence: US)
  Receive Date: 20131030
  Receipt Date: 20140818
  Transmission Date: 20150326
  Serious: Yes (Hospitalization, Other)
  Sender: FDA-Public Use
  Company Number: US-009507513-1310USA012715

PATIENT
  Sex: Female

DRUGS (1)
  1. NUVARING [Suspect]
     Active Substance: ETHINYL ESTRADIOL\ETONOGESTREL
     Indication: CONTRACEPTION
     Dosage: UNK
     Route: 067
     Dates: start: 201001, end: 20110110

REACTIONS (8)
  - Anxiety [Unknown]
  - Hypothyroidism [Unknown]
  - Asthma [Unknown]
  - Deep vein thrombosis [Unknown]
  - Intestinal adhesion lysis [Unknown]
  - Irritable bowel syndrome [Unknown]
  - Depression [Unknown]
  - Pulmonary embolism [Unknown]

NARRATIVE: CASE EVENT DATE: 201012
